FAERS Safety Report 26085738 (Version 1)
Quarter: 2025Q4

REPORT INFORMATION
  Report Type: Report from Study
  Country: US (occurrence: US)
  Receive Date: 20251125
  Receipt Date: 20251125
  Transmission Date: 20260118
  Serious: Yes (Hospitalization)
  Sender: ABBVIE
  Company Number: US-ABBVIE-6559298

PATIENT
  Age: 52 Year
  Sex: Female

DRUGS (1)
  1. RINVOQ [Suspect]
     Active Substance: UPADACITINIB
     Indication: Rheumatoid arthritis
     Dosage: STRENGTH: 15 MG
     Route: 048
     Dates: start: 2020, end: 20251012

REACTIONS (10)
  - Meniscus injury [Unknown]
  - Rheumatoid arthritis [Unknown]
  - Muscle spasms [Unknown]
  - Staphylococcal infection [Recovered/Resolved]
  - Staphylococcal infection [Unknown]
  - Pain in extremity [Unknown]
  - Mobility decreased [Unknown]
  - Fall [Unknown]
  - Accident [Unknown]
  - Knee operation [Unknown]

NARRATIVE: CASE EVENT DATE: 20240601
